FAERS Safety Report 12194089 (Version 1)
Quarter: 2016Q1

REPORT INFORMATION
  Report Type: Spontaneous
  Country: AT (occurrence: AT)
  Receive Date: 20160321
  Receipt Date: 20160321
  Transmission Date: 20160526
  Serious: Yes (Other)
  Sender: FDA-Public Use
  Company Number: AT-SUN PHARMACEUTICAL INDUSTRIES LTD-2016R1-113487

PATIENT
  Age: 70 Year
  Sex: Female

DRUGS (7)
  1. OXALIPLATIN. [Suspect]
     Active Substance: OXALIPLATIN
     Indication: COLORECTAL CANCER METASTATIC
     Dosage: 4 CYCLES
     Route: 065
     Dates: start: 2011
  2. FOLINIC ACID [Suspect]
     Active Substance: LEUCOVORIN
     Indication: COLORECTAL CANCER METASTATIC
     Dosage: 4 CYCLES
     Route: 065
     Dates: start: 2011
  3. IRINOTECAN [Suspect]
     Active Substance: IRINOTECAN
     Indication: COLORECTAL CANCER METASTATIC
     Dosage: 150 MG/M2 (EVERY 2 WEEKS FOR FIVE CYCLES)
     Route: 065
     Dates: start: 201102
  4. PANITUMUMAB [Suspect]
     Active Substance: PANITUMUMAB
     Indication: COLORECTAL CANCER METASTATIC
     Dosage: 6 MG/KG (EVERY 2 WEEKS FOR FIVE CYCLES)
     Route: 065
     Dates: start: 201102
  5. BEVACIZUMAB [Suspect]
     Active Substance: BEVACIZUMAB
     Indication: COLORECTAL CANCER METASTATIC
     Dosage: UNK
     Route: 065
     Dates: start: 2011
  6. 5-FLUOROURACIL [Suspect]
     Active Substance: FLUOROURACIL
     Indication: COLORECTAL CANCER METASTATIC
     Dosage: 4 CYCLES
     Route: 065
     Dates: start: 2011
  7. UFT [Suspect]
     Active Substance: TEGAFUR\URACIL
     Indication: COLORECTAL CANCER METASTATIC
     Dosage: TEGAFUR 2-1-1 DAY 1- 28, LEUCOVORIN 2-2-2 DAY 1-28 FOR 4 MONTHS (CYCLICAL)
     Route: 065
     Dates: start: 2011

REACTIONS (1)
  - Drug ineffective [Unknown]

NARRATIVE: CASE EVENT DATE: 2011
